FAERS Safety Report 7337705-9 (Version None)
Quarter: 2011Q1

REPORT INFORMATION
  Report Type: 
  Country: None (occurrence: None)
  Receive Date: 20110308
  Receipt Date: 20110223
  Transmission Date: 20110831
  Serious: Yes (Other)
  Sender: FDA-Public Use
  Company Number: US-AMGEN-USASP2011007049

PATIENT
  Age: 30 Year
  Sex: Female
  Weight: 98.866 kg

DRUGS (1)
  1. ENBREL [Suspect]
     Indication: RHEUMATOID ARTHRITIS
     Route: 058
     Dates: start: 20101210

REACTIONS (3)
  - PARAESTHESIA [None]
  - HYPOAESTHESIA [None]
  - CARPAL TUNNEL SYNDROME [None]
